FAERS Safety Report 7019679-3 (Version None)
Quarter: 2010Q3

REPORT INFORMATION
  Report Type: 
  Country: None (occurrence: None)
  Receive Date: 20100909
  Receipt Date: 20100609
  Transmission Date: 20110219
  Serious: No
  Sender: FDA-Public Use
  Company Number: 2010SP032577

PATIENT
  Age: 55 Year
  Sex: Female

DRUGS (7)
  1. SAPHRIS [Suspect]
     Indication: BIPOLAR DISORDER
     Dosage: 5 MG ; BID ; SL
     Route: 060
  2. TRAZODONE [Concomitant]
  3. KLONOPIN [Concomitant]
  4. PROZAC [Concomitant]
  5. LIPITOR [Concomitant]
  6. ZYRTEC [Concomitant]
  7. GLUCOPHAGE [Concomitant]

REACTIONS (3)
  - HYPOAESTHESIA ORAL [None]
  - NIGHTMARE [None]
  - SOMNOLENCE [None]
